FAERS Safety Report 5359412-4 (Version None)
Quarter: 2007Q2

REPORT INFORMATION
  Report Type: 
  Country: None (occurrence: None)
  Receive Date: 20070615
  Receipt Date: 20070604
  Transmission Date: 20071010
  Serious: Yes (Hospitalization)
  Sender: FDA-Public Use
  Company Number: SE-PFIZER INC-2007032608

PATIENT
  Sex: Female
  Weight: 63 kg

DRUGS (19)
  1. SU-011,248 [Suspect]
     Indication: GASTROINTESTINAL STROMAL TUMOUR
     Route: 048
  2. DIMETICONE [Concomitant]
     Route: 048
  3. POTASSIUM CHLORIDE [Concomitant]
     Route: 048
  4. FUROSEMIDE [Concomitant]
     Route: 048
  5. LEVAXIN [Concomitant]
     Route: 048
  6. ZYPREXA [Concomitant]
  7. ZOLPIDEM TARTRATE [Concomitant]
  8. PROPAVAN [Concomitant]
     Route: 048
  9. LACTULOSE [Concomitant]
  10. TAVEGYL [Concomitant]
     Route: 048
  11. EMOLLIENTS AND PROTECTIVES [Concomitant]
     Route: 048
  12. XYLOCAIN [Concomitant]
     Route: 048
  13. BETOLVEX [Concomitant]
     Route: 048
  14. PANTOPRAZOLE SODIUM [Concomitant]
  15. FOLACIN [Concomitant]
     Route: 048
  16. ZINCFRIN [Concomitant]
     Route: 048
  17. TIPAROL [Concomitant]
     Route: 048
     Dates: start: 20070327, end: 20070421
  18. LERGIGAN [Concomitant]
  19. INDERAL [Concomitant]
     Route: 048

REACTIONS (1)
  - PNEUMONIA [None]
